FAERS Safety Report 17462759 (Version 2)
Quarter: 2020Q1

REPORT INFORMATION
  Report Type: Spontaneous
  Country: UA (occurrence: UA)
  Receive Date: 20200226
  Receipt Date: 20200318
  Transmission Date: 20200409
  Serious: Yes (Hospitalization, Other)
  Sender: FDA-Public Use
  Company Number: UA-ASTRAZENECA-2020SE26166

PATIENT
  Age: 60 Year
  Sex: Male

DRUGS (4)
  1. METFORMIN [Concomitant]
     Active Substance: METFORMIN HYDROCHLORIDE
     Dosage: 2000
  2. FORXIGA [Suspect]
     Active Substance: DAPAGLIFLOZIN
     Indication: TYPE 2 DIABETES MELLITUS
     Dosage: 10.0MG UNKNOWN
     Route: 048
  3. SULFONYLUREAS [Concomitant]
     Active Substance: UNSPECIFIED INGREDIENT
  4. AMARYL [Concomitant]
     Active Substance: GLIMEPIRIDE
     Dosage: 3.0ML UNKNOWN

REACTIONS (4)
  - Asthenia [Recovered/Resolved]
  - Pyelonephritis chronic [Unknown]
  - Ketonuria [Recovered/Resolved]
  - Blood glucose increased [Unknown]
